FAERS Safety Report 21723077 (Version 1)
Quarter: 2022Q4

REPORT INFORMATION
  Report Type: Spontaneous
  Country: US (occurrence: US)
  Receive Date: 20221213
  Receipt Date: 20221213
  Transmission Date: 20230113
  Serious: No
  Sender: FDA-Public Use
  Company Number: US-PFIZER INC-PV202200121038

PATIENT
  Age: 68 Year
  Sex: Female

DRUGS (3)
  1. SULFASALAZINE [Interacting]
     Active Substance: SULFASALAZINE
     Dosage: UNK
  2. XELJANZ XR [Interacting]
     Active Substance: TOFACITINIB CITRATE
     Dosage: 11 MG
  3. ACTEMRA [Interacting]
     Active Substance: TOCILIZUMAB
     Dosage: UNK

REACTIONS (1)
  - Drug interaction [Unknown]
